FAERS Safety Report 4519023-7 (Version None)
Quarter: 2004Q4

REPORT INFORMATION
  Report Type: 
  Country: None (occurrence: None)
  Receive Date: 20041203
  Receipt Date: 20041203
  Transmission Date: 20050328
  Serious: Yes (Hospitalization)
  Sender: FDA-Public Use
  Company Number: None

PATIENT
  Age: 81 Year
  Sex: Female
  Weight: 76 kg

DRUGS (2)
  1. NAPROXEN [Suspect]
  2. RELAFEN [Suspect]

REACTIONS (2)
  - DUODENAL ULCER [None]
  - UPPER GASTROINTESTINAL HAEMORRHAGE [None]
